FAERS Safety Report 11599603 (Version 8)
Quarter: 2016Q4

REPORT INFORMATION
  Report Type: Spontaneous
  Country: US (occurrence: US)
  Receive Date: 20151006
  Receipt Date: 20161230
  Transmission Date: 20170206
  Serious: No
  Sender: FDA-Public Use
  Company Number: PHEH2015US004512

PATIENT
  Sex: Female

DRUGS (12)
  1. SANDOSTATIN [Suspect]
     Active Substance: OCTREOTIDE ACETATE
     Dosage: UNK
     Route: 065
  2. BENADRYL [Concomitant]
     Active Substance: DIPHENHYDRAMINE HYDROCHLORIDE
     Indication: PRODUCT USED FOR UNKNOWN INDICATION
     Dosage: UNK, PRN
     Route: 065
  3. SANDOSTATIN [Suspect]
     Active Substance: OCTREOTIDE ACETATE
     Indication: CARCINOID TUMOUR
     Dosage: 200 MCG/ML,
     Route: 030
  4. SANDOSTATIN [Suspect]
     Active Substance: OCTREOTIDE ACETATE
  5. OCTREOTIDE HYDROCHLORIDE [Suspect]
     Active Substance: OCTREOTIDE HYDROCHLORIDE
     Indication: CARCINOID TUMOUR
     Route: 065
  6. SANDOSTATIN [Suspect]
     Active Substance: OCTREOTIDE ACETATE
     Dosage: 1000 UG 3XDAY (2 TO 1000 MCG BUT SHE TAKING 3)
     Route: 065
  7. SANDOSTATIN [Suspect]
     Active Substance: OCTREOTIDE ACETATE
     Dosage: UNK
     Route: 065
  8. GABAPENTIN. [Concomitant]
     Active Substance: GABAPENTIN
     Indication: PRODUCT USED FOR UNKNOWN INDICATION
     Route: 065
  9. SANDOSTATIN [Suspect]
     Active Substance: OCTREOTIDE ACETATE
     Dosage: 300 UG, TID
     Route: 030
  10. SANDOSTATIN [Suspect]
     Active Substance: OCTREOTIDE ACETATE
     Dosage: 1000 UG, UNK
     Route: 030
  11. SANDOSTATIN [Suspect]
     Active Substance: OCTREOTIDE ACETATE
     Indication: CARCINOID SYNDROME
     Dosage: 1000 MCG/ML, TID
     Route: 030
  12. SANDOSTATIN [Suspect]
     Active Substance: OCTREOTIDE ACETATE
     Dosage: 200 MCG/ML
     Route: 030

REACTIONS (16)
  - Rash macular [Unknown]
  - Off label use [Unknown]
  - Product quality issue [Unknown]
  - Flushing [Unknown]
  - Malaise [Unknown]
  - Headache [Unknown]
  - Erythema [Unknown]
  - Flushing [Recovered/Resolved]
  - Injection site pain [Unknown]
  - Urticaria [Unknown]
  - Injection site erythema [Unknown]
  - Drug ineffective [Unknown]
  - Underdose [Unknown]
  - Wheezing [Recovered/Resolved]
  - Generalised erythema [Unknown]
  - Incorrect route of drug administration [Unknown]
